FAERS Safety Report 9214537 (Version 6)
Quarter: 2025Q1

REPORT INFORMATION
  Report Type: Spontaneous
  Country: US (occurrence: US)
  Receive Date: 20130405
  Receipt Date: 20250218
  Transmission Date: 20250408
  Serious: Yes (Death, Hospitalization, Other)
  Sender: NOVARTIS
  Company Number: PHEH2013US007684

PATIENT
  Age: 58 Year
  Sex: Male

DRUGS (2)
  1. GILENYA [Suspect]
     Active Substance: FINGOLIMOD HYDROCHLORIDE
     Indication: Multiple sclerosis
     Dosage: 0.5 MG, QD
     Route: 048
     Dates: start: 20111223, end: 20130101
  2. NATALIZUMAB [Concomitant]
     Active Substance: NATALIZUMAB
     Indication: Multiple sclerosis
     Route: 065

REACTIONS (11)
  - Pneumonia [Fatal]
  - Respiratory failure [Fatal]
  - Dyspnoea [Fatal]
  - Cardiac arrest [Fatal]
  - Glioblastoma [Fatal]
  - Generalised tonic-clonic seizure [Fatal]
  - Lymphoproliferative disorder [Not Recovered/Not Resolved]
  - Rash [Recovered/Resolved]
  - Blister [Not Recovered/Not Resolved]
  - Scab [Not Recovered/Not Resolved]
  - Leukopenia [Unknown]

NARRATIVE: CASE EVENT DATE: 20130101
